FAERS Safety Report 17168561 (Version 2)
Quarter: 2019Q4

REPORT INFORMATION
  Report Type: Report from Study
  Country: US (occurrence: US)
  Receive Date: 20191218
  Receipt Date: 20191224
  Transmission Date: 20200122
  Serious: Yes (Hospitalization, Other)
  Sender: FDA-Public Use
  Company Number: US-BRISTOL-MYERS SQUIBB COMPANY-BMS-2019-118798

PATIENT
  Age: 72 Year
  Sex: Male
  Weight: 68 kg

DRUGS (3)
  1. PACLITAXEL. [Suspect]
     Active Substance: PACLITAXEL
     Indication: OESOPHAGEAL ADENOCARCINOMA
     Dosage: 376 MILLIGRAM
     Route: 042
     Dates: start: 20191111, end: 20191202
  2. CARBOPLATIN. [Suspect]
     Active Substance: CARBOPLATIN
     Indication: OESOPHAGEAL ADENOCARCINOMA
     Dosage: 956 MILLIGRAM
     Route: 042
     Dates: start: 20191111, end: 20191202
  3. NIVOLUMAB [Suspect]
     Active Substance: NIVOLUMAB
     Indication: OESOPHAGEAL ADENOCARCINOMA
     Dosage: 480 MILLIGRAM
     Route: 042
     Dates: start: 20191111, end: 20191125

REACTIONS (5)
  - Lymphocyte count decreased [Recovered/Resolved with Sequelae]
  - White blood cell count decreased [Recovered/Resolved with Sequelae]
  - Pyrexia [Recovered/Resolved with Sequelae]
  - Chills [Recovered/Resolved with Sequelae]
  - Hypotension [Recovered/Resolved with Sequelae]

NARRATIVE: CASE EVENT DATE: 20191118
